FAERS Safety Report 8512064 (Version 7)
Quarter: 2012Q4

REPORT INFORMATION
  Report Type: 
  Country: US (occurrence: US)
  Receive Date: 20120413
  Receipt Date: 20121220
  Transmission Date: 20130627
  Serious: No
  Sender: FDA-Public Use
  Company Number: US-ASTRAZENECA-2011SE17431

PATIENT
  Age: 62 Year
  Sex: Female

DRUGS (5)
  1. NEXIUM [Suspect]
     Route: 048
  2. SEROQUEL [Suspect]
     Indication: BIPOLAR I DISORDER
     Route: 048
  3. SEROQUEL [Suspect]
     Indication: BIPOLAR I DISORDER
     Route: 048
  4. SEROQUEL [Suspect]
     Indication: BIPOLAR I DISORDER
     Route: 048
  5. SEROQUEL [Suspect]
     Indication: BIPOLAR I DISORDER
     Route: 048

REACTIONS (14)
  - Arthritis [Unknown]
  - Gait disturbance [Unknown]
  - Crying [Unknown]
  - Fibromyalgia [Unknown]
  - Cardiac disorder [Unknown]
  - Pain [Unknown]
  - Mental disorder [Unknown]
  - Confusional state [Unknown]
  - Dyspnoea [Unknown]
  - Disease recurrence [Unknown]
  - Malaise [Unknown]
  - Depression [Unknown]
  - Somnolence [Unknown]
  - Dry mouth [Unknown]
